FAERS Safety Report 7000314-5 (Version None)
Quarter: 2010Q3

REPORT INFORMATION
  Report Type: 
  Country: None (occurrence: None)
  Receive Date: 20100920
  Receipt Date: 20100607
  Transmission Date: 20110219
  Serious: No
  Sender: FDA-Public Use
  Company Number: US-ASTRAZENECA-2010SE26449

PATIENT
  Age: 29 Year
  Sex: Female
  Weight: 95.3 kg

DRUGS (5)
  1. SEROQUEL [Suspect]
     Indication: BIPOLAR I DISORDER
     Route: 048
     Dates: start: 20050101
  2. TOPAMAX [Suspect]
  3. WELLBUTRIN [Concomitant]
  4. LEXAPRO [Concomitant]
  5. DEXADRINE RITALIN TYPE DRUG-STIMULANT [Concomitant]

REACTIONS (10)
  - DRUG DOSE OMISSION [None]
  - DRUG EXPOSURE DURING PREGNANCY [None]
  - HYPERCHOLESTEROLAEMIA [None]
  - INSOMNIA [None]
  - LOSS OF CONSCIOUSNESS [None]
  - SEXUAL DYSFUNCTION [None]
  - TACHYPHRENIA [None]
  - TEMPERATURE INTOLERANCE [None]
  - WEIGHT INCREASED [None]
  - WEIGHT LOSS POOR [None]
